FAERS Safety Report 21824743 (Version 2)
Quarter: 2023Q1

REPORT INFORMATION
  Report Type: Spontaneous
  Country: US (occurrence: US)
  Receive Date: 20230105
  Receipt Date: 20230206
  Transmission Date: 20230418
  Serious: No
  Sender: FDA-Public Use
  Company Number: US-PFIZER INC-PV202300000653

PATIENT
  Age: 65 Year
  Sex: Female

DRUGS (2)
  1. IBRANCE [Suspect]
     Active Substance: PALBOCICLIB
     Indication: Breast cancer
     Dosage: 125 MG, CYCLIC (DAILY FOR THREE WEEKS ON FOLLOWED BY ONE WEEK OFF)
     Route: 048
     Dates: start: 20230110
  2. DIGOXIN [Concomitant]
     Active Substance: DIGOXIN

REACTIONS (2)
  - Alopecia [Unknown]
  - Fatigue [Not Recovered/Not Resolved]
